FAERS Safety Report 7682786-6 (Version None)
Quarter: 2011Q3

REPORT INFORMATION
  Report Type: 
  Country: None (occurrence: None)
  Receive Date: 20110812
  Receipt Date: 20110812
  Transmission Date: 20111222
  Serious: Yes (Hospitalization)
  Sender: FDA-Public Use
  Company Number: None

PATIENT
  Age: 85 Year
  Sex: Male
  Weight: 78.5 kg

DRUGS (2)
  1. ACETAMINOPHEN AND HYDROCODONE BITARTRATE [Suspect]
     Indication: PAIN
     Dosage: 5/500 MG TID PO
     Route: 048
     Dates: start: 20110413, end: 20110715
  2. ALPRAZOLAM [Suspect]
     Indication: ANXIETY
     Dosage: 0.5 MG BID PO
     Route: 048
     Dates: start: 20110712, end: 20110715

REACTIONS (4)
  - BALANCE DISORDER [None]
  - FALL [None]
  - CONFUSIONAL STATE [None]
  - DIZZINESS [None]
